FAERS Safety Report 9665924 (Version 1)
Quarter: 2013Q4

REPORT INFORMATION
  Report Type: Spontaneous
  Country: US (occurrence: None)
  Receive Date: 20131031
  Receipt Date: 20131031
  Transmission Date: 20140711
  Serious: Yes (Other)
  Sender: FDA-Public Use
  Company Number: ACO_39192_2013

PATIENT
  Age: 47 Year
  Sex: Male
  Weight: 74.8 kg

DRUGS (6)
  1. AMPYRA (DALFAMPRIDINE) TABLET, 10MG [Suspect]
     Indication: GAIT DISTURBANCE
     Route: 048
     Dates: start: 20130830, end: 2013
  2. TECFIDERA (DIMETHYL FUMARATE) [Concomitant]
  3. CARBAMAZEPINE [Concomitant]
  4. COZAAR (LOSARTAN POTASSIUM) [Concomitant]
  5. SIMVASTATIN [Concomitant]
  6. WELLBUTRIN (BUPROPION HYDROCHLORIDE) [Concomitant]

REACTIONS (1)
  - Confusional state [None]
